FAERS Safety Report 13636806 (Version 1)
Quarter: 2017Q2

REPORT INFORMATION
  Report Type: Spontaneous
  Country: US (occurrence: US)
  Receive Date: 20170609
  Receipt Date: 20170609
  Transmission Date: 20170830
  Serious: Yes (Other)
  Sender: FDA-Public Use
  Company Number: US-LHC-2017124

PATIENT
  Age: 79 Year
  Sex: Female

DRUGS (1)
  1. NITROGEN (GENERIC) [Suspect]
     Active Substance: NITROGEN
     Indication: TUMOUR HAEMORRHAGE

REACTIONS (2)
  - Umbilical hernia [None]
  - Large intestinal obstruction [Recovered/Resolved]
